FAERS Safety Report 10497222 (Version 1)
Quarter: 2014Q4

REPORT INFORMATION
  Report Type: Spontaneous
  Country: US (occurrence: US)
  Receive Date: 20141006
  Receipt Date: 20141006
  Transmission Date: 20150528
  Serious: Yes (Other)
  Sender: FDA-Public Use
  Company Number: US-TEVA-512669USA

PATIENT
  Age: 38 Year
  Sex: Male

DRUGS (5)
  1. BUPRENORPHINE [Interacting]
     Active Substance: BUPRENORPHINE
     Dosage: 8MG/2MG; FILMS
     Route: 065
  2. GABAPENTIN. [Interacting]
     Active Substance: GABAPENTIN
     Indication: DRUG ABUSE
     Dosage: UP TO 2400MG
     Route: 065
  3. QUETIAPINE FUMARATE. [Interacting]
     Active Substance: QUETIAPINE FUMARATE
     Indication: DRUG ABUSE
     Dosage: UP TO 1000MG
     Route: 065
  4. BUPRENORPHINE [Suspect]
     Active Substance: BUPRENORPHINE
     Indication: DRUG ABUSE
     Dosage: 8MG/2MG; TWO FILMS AS SINGLE DAILY DOSE
     Route: 060
  5. NALOXONE [Suspect]
     Active Substance: NALOXONE
     Indication: DRUG ABUSE
     Dosage: WITH BUPRENORPHINE: 8MG/2MG; TWO FILMS AS SINGLE DAILY DOSE

REACTIONS (3)
  - Drug abuse [Unknown]
  - Potentiating drug interaction [Unknown]
  - Poisoning [Unknown]
